FAERS Safety Report 20063221 (Version 1)
Quarter: 2021Q4

REPORT INFORMATION
  Report Type: Spontaneous
  Country: CA (occurrence: CA)
  Receive Date: 20211112
  Receipt Date: 20211112
  Transmission Date: 20220303
  Serious: Yes (Other)
  Sender: FDA-Public Use
  Company Number: CA-BAYER-2021A247197

PATIENT
  Age: 59 Year
  Sex: Female

DRUGS (1)
  1. CIPROFLOXACIN [Suspect]
     Active Substance: CIPROFLOXACIN
     Route: 048

REACTIONS (5)
  - Periorbital oedema [None]
  - Eye pain [None]
  - Nausea [None]
  - Vomiting [None]
  - Erythema [None]
